FAERS Safety Report 5676675-6 (Version None)
Quarter: 2008Q1

REPORT INFORMATION
  Report Type: 
  Country: None (occurrence: None)
  Receive Date: 20080321
  Receipt Date: 20080321
  Transmission Date: 20080703
  Serious: Yes (Hospitalization)
  Sender: FDA-Public Use
  Company Number: None

PATIENT
  Sex: Female
  Weight: 47.7 kg

DRUGS (4)
  1. FLUOROURACIL [Suspect]
     Dosage: 3292 MG
     Dates: end: 20080303
  2. BEVACIZUMAB (RHUMAB VEGF) [Suspect]
     Dosage: 470 MG
     Dates: end: 20080303
  3. LEUCOVORIN CALCIUM [Suspect]
     Dosage: 588 MG
     Dates: end: 20080303
  4. ELOXATIN [Suspect]
     Dosage: 95 MG
     Dates: end: 20080303

REACTIONS (6)
  - ABDOMINAL DISTENSION [None]
  - DIARRHOEA [None]
  - ILEUS [None]
  - NAUSEA [None]
  - OBSTRUCTION [None]
  - VOMITING [None]
